FAERS Safety Report 6011042-7 (Version None)
Quarter: 2008Q4

REPORT INFORMATION
  Report Type: 
  Country: None (occurrence: None)
  Receive Date: 20081216
  Receipt Date: 20081210
  Transmission Date: 20090506
  Serious: Yes (Other)
  Sender: FDA-Public Use
  Company Number: 08H-163-0315160-00

PATIENT
  Age: 82 Year
  Sex: Female

DRUGS (29)
  1. AMIDATE [Suspect]
     Indication: ENDOTRACHEAL INTUBATION
     Dosage: INTRAVENOUS
     Route: 042
     Dates: start: 20081002
  2. VERSED [Suspect]
     Indication: ENDOTRACHEAL INTUBATION
     Dosage: INTRAVENOUS
     Route: 042
     Dates: start: 20081002
  3. BLINDED THERAPY [Concomitant]
  4. ACETYLSALICYLIC ACID SRT [Concomitant]
  5. COMBIVENT [Concomitant]
  6. FERROUS SULFATE TAB [Concomitant]
  7. POLYCARBOPHIL (POLYCARBOPHIL) [Concomitant]
  8. ISOSORBIDE MONONITRATE [Concomitant]
  9. EXONAPARIN (ENOXAPARIN) [Concomitant]
  10. MAG-OX (MAGNESIUM OXIDE) [Concomitant]
  11. GUAIFENESIN (GUIAFENESIN) [Concomitant]
  12. NOVOLIN (INSULIN) [Concomitant]
  13. PANTROPRAZOLE (PANTOPRAZOLE) [Concomitant]
  14. SENNA (SENNA ALEXANDRINA) [Concomitant]
  15. MONTELUKAST SODIUM [Concomitant]
  16. METHYLPREDNISOLONE [Concomitant]
  17. SOTALOL HCL [Concomitant]
  18. SIMVASTATIN [Concomitant]
  19. AVELOX [Concomitant]
  20. VANCOMYCIN [Concomitant]
  21. CALCIUM GLUCONATE [Concomitant]
  22. FENTANYL-100 [Concomitant]
  23. KAYEXALATE [Concomitant]
  24. PREVACID [Concomitant]
  25. ZPSYN (PIP/TAZO) [Concomitant]
  26. DEXTROSE [Concomitant]
  27. PERIDEX (CHLORHEXIDINE GLUCONATE) [Concomitant]
  28. HYDRALAZINE HCL [Concomitant]
  29. LANTUS [Concomitant]

REACTIONS (4)
  - CARDIO-RESPIRATORY ARREST [None]
  - CHOLECYSTITIS [None]
  - HEPATITIS TOXIC [None]
  - PLEURAL EFFUSION [None]
